FAERS Safety Report 15961284 (Version 1)
Quarter: 2019Q1

REPORT INFORMATION
  Report Type: Spontaneous
  Country: US (occurrence: US)
  Receive Date: 20190214
  Receipt Date: 20190214
  Transmission Date: 20190417
  Serious: No
  Sender: FDA-Public Use
  Company Number: None

PATIENT
  Age: 70 Year
  Sex: Male
  Weight: 103.5 kg

DRUGS (13)
  1. ASPIRIN. [Concomitant]
     Active Substance: ASPIRIN
  2. VITAMIN [Concomitant]
     Active Substance: VITAMINS
  3. KLOR-CON [Suspect]
     Active Substance: POTASSIUM CHLORIDE
     Indication: HYPOKALAEMIA
     Dosage: ?          QUANTITY:1 TABLET(S);?
     Route: 048
  4. CLONIDINE. [Concomitant]
     Active Substance: CLONIDINE
  5. COREG [Concomitant]
     Active Substance: CARVEDILOL
  6. ZETIA [Concomitant]
     Active Substance: EZETIMIBE
  7. LISINOPRIL. [Concomitant]
     Active Substance: LISINOPRIL
  8. ALDACTONE [Concomitant]
     Active Substance: SPIRONOLACTONE
  9. ASTELINE [Concomitant]
  10. LIPITOR [Concomitant]
     Active Substance: ATORVASTATIN CALCIUM
  11. DILTIAZEM. [Concomitant]
     Active Substance: DILTIAZEM
  12. TRICOR [Concomitant]
     Active Substance: FENOFIBRATE
  13. CERTIZINE [Concomitant]

REACTIONS (1)
  - Skin odour abnormal [None]

NARRATIVE: CASE EVENT DATE: 20160201
